FAERS Safety Report 10342162 (Version 1)
Quarter: 2014Q3

REPORT INFORMATION
  Report Type: Spontaneous
  Country: US (occurrence: US)
  Receive Date: 20140725
  Receipt Date: 20140725
  Transmission Date: 20150326
  Serious: No
  Sender: FDA-Public Use
  Company Number: US-PFIZER INC-2014206415

PATIENT
  Age: 62 Year
  Sex: Female
  Weight: 97.51 kg

DRUGS (4)
  1. LYRICA [Suspect]
     Active Substance: PREGABALIN
     Indication: DIABETIC NEPHROPATHY
  2. OXYCODONE [Concomitant]
     Active Substance: OXYCODONE
     Dosage: 10 MG, 2X/DAY (10 MG TWO TIMES A DAY ONCE IN THE MORNING AND ONCE AT NIGHT)
     Dates: start: 2005
  3. LYRICA [Suspect]
     Active Substance: PREGABALIN
     Indication: PAIN
  4. LYRICA [Suspect]
     Active Substance: PREGABALIN
     Indication: ARTHRITIS
     Dosage: UNK
     Dates: start: 201309, end: 2013

REACTIONS (1)
  - Drug ineffective [Unknown]

NARRATIVE: CASE EVENT DATE: 2013
